FAERS Safety Report 7528430-X (Version None)
Quarter: 2011Q2

REPORT INFORMATION
  Report Type: 
  Country: None (occurrence: None)
  Receive Date: 20110607
  Receipt Date: 20110110
  Transmission Date: 20111010
  Serious: No
  Sender: FDA-Public Use
  Company Number: US-ASTRAZENECA-2011SE03334

PATIENT
  Sex: Female

DRUGS (2)
  1. BLOOD PRESSURE MEDICATION [Concomitant]
  2. PRILOSEC OTC [Suspect]
     Route: 048
     Dates: start: 20110102, end: 20110106

REACTIONS (4)
  - RASH [None]
  - VISION BLURRED [None]
  - MUSCLE TWITCHING [None]
  - BACK PAIN [None]
